FAERS Safety Report 4316910-X (Version None)
Quarter: 2004Q1

REPORT INFORMATION
  Report Type: 
  Country: None (occurrence: None)
  Receive Date: 20040308
  Receipt Date: 20040120
  Transmission Date: 20041129
  Serious: Yes (Hospitalization)
  Sender: FDA-Public Use
  Company Number: ALMO2003022

PATIENT
  Age: 45 Year
  Sex: Female
  Weight: 62.5964 kg

DRUGS (5)
  1. ANDROGEL [Suspect]
     Indication: LIBIDO DECREASED
     Dosage: 5 G D TRANSDERMAL
     Route: 062
     Dates: start: 20030401, end: 20030601
  2. AXERT [Suspect]
     Indication: MIGRAINE
     Dosage: 12.5 MG DAILY PO
     Route: 048
     Dates: start: 20030701, end: 20030801
  3. AXERT [Concomitant]
  4. ORTHO TRI-CYCLEN [Concomitant]
  5. LORTAB [Concomitant]

REACTIONS (5)
  - CHEST PAIN [None]
  - DYSPNOEA [None]
  - HEADACHE [None]
  - PNEUMONIA [None]
  - STRESS SYMPTOMS [None]
